FAERS Safety Report 14674873 (Version 1)
Quarter: 2018Q1

REPORT INFORMATION
  Report Type: Spontaneous
  Country: IT (occurrence: IT)
  Receive Date: 20180323
  Receipt Date: 20180323
  Transmission Date: 20180509
  Serious: Yes (Other)
  Sender: FDA-Public Use
  Company Number: IT-HORIZON-PRE-0119-2018

PATIENT
  Age: 73 Year
  Sex: Female

DRUGS (4)
  1. BENDAMUSTINE HYDROCHLORIDE. [Suspect]
     Active Substance: BENDAMUSTINE HYDROCHLORIDE
     Indication: LARGE GRANULAR LYMPHOCYTOSIS
     Dosage: 70 MG/M2, CYCLIC (FOR 2 CONSECUTIVE DAYS EVERY 28 DAYS)
     Route: 042
  2. PREDNISONE. [Suspect]
     Active Substance: PREDNISONE
     Indication: ANAEMIA
     Dates: start: 2008
  3. TRIMETHOPRIM-SULFAMETHOXAZOLE [Concomitant]
     Active Substance: SULFAMETHOXAZOLE\TRIMETHOPRIM
     Indication: ANTIFUNGAL PROPHYLAXIS
     Route: 065
  4. CYCLOSPORINE. [Suspect]
     Active Substance: CYCLOSPORINE
     Indication: THROMBOCYTOPENIA
     Dates: start: 201209

REACTIONS (6)
  - Hypertransaminasaemia [Unknown]
  - Neutropenia [Unknown]
  - Rash [Unknown]
  - Vasculitis [Unknown]
  - Escherichia urinary tract infection [Unknown]
  - Prescribed underdose [Unknown]
